FAERS Safety Report 9191375 (Version 1)
Quarter: 2013Q1

REPORT INFORMATION
  Report Type: Spontaneous
  Country: US (occurrence: US)
  Receive Date: 20130326
  Receipt Date: 20130326
  Transmission Date: 20140127
  Serious: Yes (Other)
  Sender: FDA-Public Use
  Company Number: US-MPIJNJ-2013-02225

PATIENT
  Sex: Female

DRUGS (3)
  1. VELCADE [Suspect]
     Indication: PLASMA CELL MYELOMA
     Dosage: UNK UNK, CYCLIC
  2. REVLIMID [Suspect]
     Indication: PLASMA CELL MYELOMA
     Dosage: 10 MG, CYCLIC
     Route: 048
     Dates: start: 201112
  3. REVLIMID [Suspect]
     Dosage: 5 MG, CYCLIC
     Route: 048
     Dates: start: 20120114

REACTIONS (4)
  - Chest pain [Unknown]
  - Diarrhoea [Unknown]
  - Asthenia [Unknown]
  - Muscle spasms [Unknown]
